FAERS Safety Report 17219021 (Version 1)
Quarter: 2019Q4

REPORT INFORMATION
  Report Type: Spontaneous
  Country: BE (occurrence: BE)
  Receive Date: 20191231
  Receipt Date: 20191231
  Transmission Date: 20200122
  Serious: Yes (Other)
  Sender: FDA-Public Use
  Company Number: BE-PFIZER INC-2019530327

PATIENT
  Age: 37 Year
  Sex: Male
  Weight: 109.5 kg

DRUGS (2)
  1. LIPITOR [Suspect]
     Active Substance: ATORVASTATIN CALCIUM
     Dosage: 20 MG, 1X/DAY
     Route: 048
     Dates: start: 201902, end: 201906
  2. PANTOMED [PANTOPRAZOLE SODIUM SESQUIHYDRATE] [Concomitant]
     Active Substance: PANTOPRAZOLE SODIUM
     Dosage: 40 MG, DAILY
     Dates: start: 20190131

REACTIONS (13)
  - Abdominal distension [Unknown]
  - Gastritis [Unknown]
  - Hypothyroidism [Recovered/Resolved]
  - Oesophagitis [Unknown]
  - Gastrointestinal disorder [Recovering/Resolving]
  - Irritable bowel syndrome [Unknown]
  - Merycism [Unknown]
  - Constipation [Unknown]
  - Erectile dysfunction [Unknown]
  - Diarrhoea [Recovered/Resolved]
  - Condition aggravated [Recovering/Resolving]
  - Abdominal pain [Unknown]
  - Anxiety [Unknown]

NARRATIVE: CASE EVENT DATE: 2019
